FAERS Safety Report 11111679 (Version 1)
Quarter: 2015Q2

REPORT INFORMATION
  Report Type: Spontaneous
  Country: CH (occurrence: CH)
  Receive Date: 20150514
  Receipt Date: 20150514
  Transmission Date: 20150821
  Serious: Yes (Hospitalization)
  Sender: FDA-Public Use
  Company Number: CH-ASTRAZENECA-2015SE42732

PATIENT
  Age: 650 Month
  Sex: Male

DRUGS (41)
  1. ZOLPIDEM [Suspect]
     Active Substance: ZOLPIDEM\ZOLPIDEM TARTRATE
     Indication: PRODUCT USED FOR UNKNOWN INDICATION
     Route: 048
     Dates: start: 201410, end: 201410
  2. XARELTO [Suspect]
     Active Substance: RIVAROXABAN
     Indication: THROMBOSIS PROPHYLAXIS
     Dosage: 10 MG SINGLE DOSE
     Route: 048
     Dates: start: 20150307, end: 20150308
  3. ZINACEF [Suspect]
     Active Substance: CEFUROXIME SODIUM
     Indication: KNEE OPERATION
     Dosage: 1.5 G 1 OR 2 TIMES
     Route: 041
     Dates: start: 20150216
  4. BALDRIPARAN [Suspect]
     Active Substance: VALERIAN
     Indication: PRODUCT USED FOR UNKNOWN INDICATION
     Route: 048
     Dates: start: 20150224, end: 20150227
  5. CLEXANE [Concomitant]
     Active Substance: ENOXAPARIN SODIUM
     Indication: THROMBOSIS PROPHYLAXIS
     Dosage: 40 MG ONE OR TWO TIMES A DAY
     Route: 058
     Dates: start: 20150216, end: 20150321
  6. DORMICUM [Concomitant]
     Active Substance: MIDAZOLAM\MIDAZOLAM HYDROCHLORIDE
     Indication: PREOPERATIVE CARE
     Route: 048
     Dates: start: 20150216, end: 20150216
  7. ZOLPIDEM [Suspect]
     Active Substance: ZOLPIDEM\ZOLPIDEM TARTRATE
     Indication: PRODUCT USED FOR UNKNOWN INDICATION
     Route: 048
     Dates: start: 20150227, end: 20150308
  8. SINTROM [Suspect]
     Active Substance: ACENOCOUMAROL
     Indication: THROMBOSIS PROPHYLAXIS
     Route: 048
     Dates: start: 201410, end: 201410
  9. CONDROSULF [Suspect]
     Active Substance: CHONDROITIN SULFATE (CHICKEN)
     Indication: ARTHRITIS
     Route: 048
     Dates: end: 201503
  10. OXYCONTIN [Concomitant]
     Active Substance: OXYCODONE HYDROCHLORIDE
     Indication: POSTOPERATIVE ANALGESIA
     Route: 048
     Dates: start: 201410, end: 201410
  11. NEXIUM [Suspect]
     Active Substance: ESOMEPRAZOLE MAGNESIUM
     Indication: GASTROOESOPHAGEAL REFLUX PROPHYLAXIS
     Route: 048
     Dates: start: 201410, end: 201410
  12. NEXIUM [Suspect]
     Active Substance: ESOMEPRAZOLE MAGNESIUM
     Indication: KNEE OPERATION
     Route: 048
     Dates: start: 201410, end: 201410
  13. NEXIUM [Suspect]
     Active Substance: ESOMEPRAZOLE MAGNESIUM
     Indication: KNEE OPERATION
     Route: 048
     Dates: start: 2015
  14. NOVALGIN [Suspect]
     Active Substance: METAMIZOLE SODIUM
     Indication: KNEE OPERATION
     Route: 048
     Dates: start: 201410, end: 201410
  15. CLEXANE [Concomitant]
     Active Substance: ENOXAPARIN SODIUM
     Indication: THROMBOSIS PROPHYLAXIS
     Route: 058
     Dates: start: 20150216, end: 20150321
  16. FLUDEX [Concomitant]
     Active Substance: INDAPAMIDE
     Indication: HYPERTENSION
     Route: 048
  17. CARBOSTESIN [Concomitant]
     Active Substance: BUPIVACAINE HYDROCHLORIDE
     Indication: KNEE OPERATION
     Route: 065
     Dates: start: 20150216, end: 20150216
  18. NEXIUM [Suspect]
     Active Substance: ESOMEPRAZOLE MAGNESIUM
     Indication: GASTROOESOPHAGEAL REFLUX PROPHYLAXIS
     Route: 048
     Dates: start: 2015
  19. FRAGMIN [Suspect]
     Active Substance: DALTEPARIN SODIUM
     Indication: THROMBOSIS PROPHYLAXIS
     Dosage: 5000 IU/0.2 ML/D
     Route: 058
     Dates: start: 20150224, end: 20150306
  20. NOVALGIN [Suspect]
     Active Substance: METAMIZOLE SODIUM
     Indication: KNEE OPERATION
     Route: 048
     Dates: start: 20150216, end: 20150317
  21. FERRUM HAUSMANN [Concomitant]
     Active Substance: FERROUS FUMARATE
     Indication: PRODUCT USED FOR UNKNOWN INDICATION
     Route: 048
     Dates: start: 2015, end: 2015
  22. OXYCONTIN [Concomitant]
     Active Substance: OXYCODONE HYDROCHLORIDE
     Indication: KNEE OPERATION
     Route: 048
     Dates: start: 201410, end: 201410
  23. ZOLPIDEM [Suspect]
     Active Substance: ZOLPIDEM\ZOLPIDEM TARTRATE
     Indication: KNEE OPERATION
     Route: 048
     Dates: start: 201410, end: 201410
  24. DAFALGAN [Suspect]
     Active Substance: ACETAMINOPHEN
     Indication: POSTOPERATIVE ANALGESIA
     Route: 048
     Dates: start: 20150216, end: 20150224
  25. SINTROM [Suspect]
     Active Substance: ACENOCOUMAROL
     Indication: KNEE OPERATION
     Route: 048
     Dates: start: 201410, end: 201410
  26. SINTROM [Suspect]
     Active Substance: ACENOCOUMAROL
     Indication: KNEE OPERATION
     Dosage: 1 MG DEPENDING ON INR
     Route: 048
     Dates: start: 20150222, end: 20150224
  27. ZINACEF [Suspect]
     Active Substance: CEFUROXIME SODIUM
     Indication: KNEE OPERATION
     Route: 041
     Dates: start: 201410, end: 201410
  28. VALVERDE [Concomitant]
     Active Substance: HERBALS
     Indication: PRODUCT USED FOR UNKNOWN INDICATION
     Dosage: ONCE
     Route: 048
     Dates: start: 20150223, end: 20150223
  29. OXYCONTIN [Concomitant]
     Active Substance: OXYCODONE HYDROCHLORIDE
     Indication: KNEE OPERATION
     Route: 048
     Dates: start: 20150217, end: 20150218
  30. VOLUVEN [Concomitant]
     Active Substance: HYDROXYETHYL STARCH 130/0.4
     Indication: KNEE OPERATION
     Route: 041
     Dates: start: 20150216, end: 20150216
  31. ZOLPIDEM [Suspect]
     Active Substance: ZOLPIDEM\ZOLPIDEM TARTRATE
     Indication: KNEE OPERATION
     Route: 048
     Dates: start: 20150227, end: 20150308
  32. SINTROM [Suspect]
     Active Substance: ACENOCOUMAROL
     Indication: THROMBOSIS PROPHYLAXIS
     Dosage: 1 MG DEPENDING ON INR
     Route: 048
     Dates: start: 20150222, end: 20150224
  33. NOVALGIN [Suspect]
     Active Substance: METAMIZOLE SODIUM
     Indication: POSTOPERATIVE ANALGESIA
     Route: 048
     Dates: start: 20150216, end: 20150317
  34. OXYCONTIN [Concomitant]
     Active Substance: OXYCODONE HYDROCHLORIDE
     Indication: POSTOPERATIVE ANALGESIA
     Route: 048
     Dates: start: 20150217, end: 20150218
  35. ROPIVACAINE [Concomitant]
     Active Substance: ROPIVACAINE
     Indication: KNEE OPERATION
     Route: 065
     Dates: start: 20150216, end: 20150216
  36. NOVALGIN [Suspect]
     Active Substance: METAMIZOLE SODIUM
     Indication: POSTOPERATIVE ANALGESIA
     Route: 048
     Dates: start: 201410, end: 201410
  37. RISPERIDON [Concomitant]
     Active Substance: RISPERIDONE
     Indication: ATTENTION DEFICIT/HYPERACTIVITY DISORDER
     Route: 048
  38. VENLAFAXIN [Concomitant]
     Active Substance: VENLAFAXINE HYDROCHLORIDE
     Indication: ATTENTION DEFICIT/HYPERACTIVITY DISORDER
     Route: 048
  39. VENLAFAXIN [Concomitant]
     Active Substance: VENLAFAXINE HYDROCHLORIDE
     Indication: ATTENTION DEFICIT/HYPERACTIVITY DISORDER
     Route: 048
  40. ERYTHROCYTES [Concomitant]
     Active Substance: HUMAN RED BLOOD CELL
     Indication: KNEE OPERATION
     Route: 041
     Dates: start: 20150216, end: 20150216
  41. ROPIVACAINE [Concomitant]
     Active Substance: ROPIVACAINE
     Indication: KNEE OPERATION
     Route: 065
     Dates: start: 201410, end: 201410

REACTIONS (12)
  - Nausea [None]
  - Alpha-1 anti-trypsin decreased [Unknown]
  - Knee operation [None]
  - Blood lactate dehydrogenase increased [Unknown]
  - Fatigue [None]
  - Cytomegalovirus test positive [Unknown]
  - C-reactive protein increased [Unknown]
  - Arthritis [None]
  - Vomiting [None]
  - Antinuclear antibody positive [Unknown]
  - Hepatitis cholestatic [Recovering/Resolving]
  - Constipation [Unknown]

NARRATIVE: CASE EVENT DATE: 201503
